FAERS Safety Report 6551422-4 (Version None)
Quarter: 2010Q1

REPORT INFORMATION
  Report Type: 
  Country: None (occurrence: None)
  Receive Date: 20100120
  Receipt Date: 20100105
  Transmission Date: 20100710
  Serious: Yes (Life-Threatening)
  Sender: FDA-Public Use
  Company Number: DSA_42338_2010

PATIENT
  Age: 60 Year
  Sex: Female

DRUGS (2)
  1. DILTIAZEM HYDROCHLORIDE [Suspect]
     Indication: HYPERTENSION
     Dosage: 3000 MG 1X ORAL, 300 MG QD ORAL
     Route: 048
     Dates: start: 20091022, end: 20091022
  2. DILTIAZEM HYDROCHLORIDE [Suspect]
     Indication: HYPERTENSION
     Dosage: 3000 MG 1X ORAL, 300 MG QD ORAL
     Route: 048
     Dates: end: 20091022

REACTIONS (9)
  - ATRIAL FIBRILLATION [None]
  - BRADYCARDIA [None]
  - CARDIOGENIC SHOCK [None]
  - HYPOTENSION [None]
  - INTENTIONAL OVERDOSE [None]
  - PERIPHERAL ISCHAEMIA [None]
  - PLEURAL EFFUSION [None]
  - THROMBOCYTOPENIA [None]
  - VASOPLEGIA SYNDROME [None]
